FAERS Safety Report 4821875-8 (Version None)
Quarter: 2005Q4

REPORT INFORMATION
  Report Type: 
  Country: None (occurrence: None)
  Receive Date: 20051103
  Receipt Date: 20051024
  Transmission Date: 20060501
  Serious: Yes (Life-Threatening, Other)
  Sender: FDA-Public Use
  Company Number: 2005143389

PATIENT
  Age: 69 Year
  Sex: Female
  Weight: 57.5 kg

DRUGS (12)
  1. NORVASC [Suspect]
     Indication: HYPERTENSION
     Dosage: 10 MG (5MG, 2 IN 1 D), ORAL
     Route: 048
     Dates: start: 20050808, end: 20050926
  2. LIPITOR [Suspect]
     Indication: HYPERCHOLESTEROLAEMIA
     Dosage: 10 MG (10 MG, 1 IN 1 D), ORAL
     Route: 048
     Dates: start: 20050817, end: 20050925
  3. DOXAZOSIN MESYLATE [Suspect]
     Indication: ILL-DEFINED DISORDER
     Dosage: 4 MG (2 MG, 2 IN 1 D), ORAL
     Route: 048
     Dates: start: 20050808, end: 20050831
  4. ALLOPURINOL [Suspect]
     Indication: HYPERURICAEMIA
     Dosage: 200 MG (100 MG, 1 IN 1 D), ORAL
     Route: 048
     Dates: start: 20050817, end: 20050926
  5. RABEPRAZOLE SODIUM [Suspect]
     Indication: DUODENAL ULCER
     Dosage: 10 MG (1 IN 1 D), ORAL
     Route: 048
     Dates: start: 20050829, end: 20050925
  6. GASLON (IRSOGLADINE MALEATE) [Suspect]
     Indication: DUODENAL ULCER
     Dosage: 4 MG (2 IN 1 D), ORAL
     Route: 048
     Dates: start: 20050829, end: 20050926
  7. CARVEDILOL [Concomitant]
  8. METOPROLOL TARTRATE [Concomitant]
  9. ADONA (CARBAZOCHROME SODIUM SULFONATE) [Concomitant]
  10. NIPOLAZIN (MEQUITAZINE) [Concomitant]
  11. CELTECT (OXATOMIDE) [Concomitant]
  12. HYTHIOL (CYSTEINE) [Concomitant]

REACTIONS (8)
  - AGRANULOCYTOSIS [None]
  - BLOOD CHOLESTEROL INCREASED [None]
  - BLOOD URIC ACID INCREASED [None]
  - DUODENAL ULCER [None]
  - LEUKOPENIA [None]
  - PYREXIA [None]
  - STOMACH DISCOMFORT [None]
  - TOXIC SKIN ERUPTION [None]
